FAERS Safety Report 13741279 (Version 1)
Quarter: 2017Q3

REPORT INFORMATION
  Report Type: Spontaneous
  Country: US (occurrence: US)
  Receive Date: 20170711
  Receipt Date: 20170711
  Transmission Date: 20171127
  Serious: Yes (Life-Threatening, Disabling)
  Sender: FDA-Public Use
  Company Number: None

PATIENT
  Age: 60 Year
  Sex: Male
  Weight: 84.15 kg

DRUGS (3)
  1. CLONAZAPAM [Suspect]
     Active Substance: CLONAZEPAM
     Indication: MYOCLONIC EPILEPSY
     Dosage: ?          OTHER STRENGTH:MG;QUANTITY:1 TABLET(S);?
     Route: 048
     Dates: start: 20130614, end: 20150129
  2. VITAMIN C [Concomitant]
     Active Substance: ASCORBIC ACID
  3. ZONISIMIDE [Concomitant]

REACTIONS (37)
  - Nightmare [None]
  - Tachycardia [None]
  - Hypoaesthesia oral [None]
  - Headache [None]
  - Hyperacusis [None]
  - Weight increased [None]
  - Cognitive disorder [None]
  - Paranoia [None]
  - Fear [None]
  - Tinnitus [None]
  - Haemorrhage urinary tract [None]
  - Depersonalisation/derealisation disorder [None]
  - Temperature intolerance [None]
  - Drug dependence [None]
  - Gastrointestinal pain [None]
  - Constipation [None]
  - Disinhibition [None]
  - Anxiety [None]
  - Rash [None]
  - Drug withdrawal syndrome [None]
  - Derealisation [None]
  - Myoclonus [None]
  - Condition aggravated [None]
  - Insomnia [None]
  - Pain [None]
  - Paraesthesia [None]
  - Blood pressure increased [None]
  - Alopecia [None]
  - Memory impairment [None]
  - Depression [None]
  - Agoraphobia [None]
  - Hallucination, visual [None]
  - Chest discomfort [None]
  - Cerebral disorder [None]
  - Muscle spasms [None]
  - Dizziness [None]
  - Social avoidant behaviour [None]

NARRATIVE: CASE EVENT DATE: 20150701
